FAERS Safety Report 14362505 (Version 3)
Quarter: 2018Q3

REPORT INFORMATION
  Report Type: Report from Study
  Country: US (occurrence: US)
  Receive Date: 20180108
  Receipt Date: 20180716
  Transmission Date: 20181010
  Serious: Yes (Other)
  Sender: FDA-Public Use
  Company Number: PHEH2018US000567

PATIENT
  Age: 35 Year
  Sex: Male
  Weight: 109.7 kg

DRUGS (1)
  1. GILENYA [Suspect]
     Active Substance: FINGOLIMOD HYDROCHLORIDE
     Indication: PRODUCT USED FOR UNKNOWN INDICATION
     Dosage: 0.5 MG, QD
     Route: 048
     Dates: start: 20170401, end: 20180103

REACTIONS (10)
  - Hepatic enzyme increased [Not Recovered/Not Resolved]
  - Amnesia [Unknown]
  - Anxiety [Unknown]
  - Depression [Unknown]
  - Hepatitis toxic [Unknown]
  - Diarrhoea [Unknown]
  - Headache [Unknown]
  - Decreased appetite [Unknown]
  - Emotional disorder [Unknown]
  - Pruritus [Unknown]

NARRATIVE: CASE EVENT DATE: 20171115
